FAERS Safety Report 16668279 (Version 4)
Quarter: 2019Q4

REPORT INFORMATION
  Report Type: Report from Study
  Country: US (occurrence: US)
  Receive Date: 20190805
  Receipt Date: 20191231
  Transmission Date: 20200122
  Serious: Yes (Other)
  Sender: FDA-Public Use
  Company Number: US-PFIZER INC-2019298347

PATIENT
  Age: 57 Year
  Sex: Female

DRUGS (1)
  1. IBRANCE [Suspect]
     Active Substance: PALBOCICLIB
     Indication: BREAST CANCER METASTATIC
     Dosage: 125 MG CYCLIC (ONCE DAILY 21 OUT OF 28 DAYS)
     Route: 048
     Dates: start: 20190608

REACTIONS (7)
  - Alopecia [Not Recovered/Not Resolved]
  - Leukopenia [Unknown]
  - Taste disorder [Not Recovered/Not Resolved]
  - Cough [Unknown]
  - Bone marrow failure [Not Recovered/Not Resolved]
  - Fatigue [Recovering/Resolving]
  - Pyrexia [Recovered/Resolved]

NARRATIVE: CASE EVENT DATE: 2019
